FAERS Safety Report 4606029-2 (Version None)
Quarter: 2005Q1

REPORT INFORMATION
  Report Type: 
  Country: None (occurrence: None)
  Receive Date: 20050311
  Receipt Date: 20050225
  Transmission Date: 20050727
  Serious: Yes (Hospitalization)
  Sender: FDA-Public Use
  Company Number: US-ROCHE-396777

PATIENT
  Age: 20 Year
  Sex: Male
  Weight: 81.6 kg

DRUGS (3)
  1. CELLCEPT [Suspect]
     Route: 048
     Dates: start: 19970708, end: 20041212
  2. CYCLOSPORINE [Concomitant]
     Dosage: 50 MG IN THE PM THEN INCREASED TO 50MG IN THE AM AND 75MG IN THE PM.
     Route: 048
     Dates: start: 19970708
  3. GROWTH HORMONE [Concomitant]
     Indication: GROWTH RETARDATION
     Dates: start: 20030615

REACTIONS (3)
  - CENTRAL NERVOUS SYSTEM INFECTION [None]
  - DIPLOPIA [None]
  - INFECTION [None]
